FAERS Safety Report 4576423-7 (Version None)
Quarter: 2005Q1

REPORT INFORMATION
  Report Type: 
  Country: None (occurrence: None)
  Receive Date: 20050207
  Receipt Date: 20050124
  Transmission Date: 20050727
  Serious: Yes (Other)
  Sender: FDA-Public Use
  Company Number: SP-2005-002043

PATIENT
  Age: 68 Year
  Sex: Male

DRUGS (3)
  1. ALTEIS 20 [Suspect]
     Indication: ESSENTIAL HYPERTENSION
     Dosage: 20 MG QD PO
     Route: 048
     Dates: start: 20040915, end: 20041010
  2. VOLTAREN [Concomitant]
  3. SINGULAIR [Concomitant]

REACTIONS (3)
  - LARYNGEAL DISCOMFORT [None]
  - SUFFOCATION FEELING [None]
  - THROAT TIGHTNESS [None]
